FAERS Safety Report 15073844 (Version 2)
Quarter: 2018Q3

REPORT INFORMATION
  Report Type: Spontaneous
  Country: PT (occurrence: PT)
  Receive Date: 20180627
  Receipt Date: 20180906
  Transmission Date: 20181010
  Serious: Yes (Hospitalization, Other)
  Sender: FDA-Public Use
  Company Number: PHHY2018PT028568

PATIENT
  Age: 13 Year

DRUGS (1)
  1. CEFTRIAXONE. [Suspect]
     Active Substance: CEFTRIAXONE
     Indication: SALMONELLOSIS
     Dosage: 3 G, QD (75 MG/KG/DAY)
     Route: 065

REACTIONS (6)
  - Abdominal pain upper [Recovered/Resolved]
  - Vomiting [Unknown]
  - Bile duct stone [Recovered/Resolved]
  - Cholelithiasis [Recovered/Resolved]
  - Hepatitis cholestatic [Unknown]
  - Choluria [Unknown]
